FAERS Safety Report 7084543-0 (Version None)
Quarter: 2010Q4

REPORT INFORMATION
  Report Type: 
  Country: None (occurrence: None)
  Receive Date: 20101104
  Receipt Date: 20101022
  Transmission Date: 20110411
  Serious: Yes (Other)
  Sender: FDA-Public Use
  Company Number: US-AMGEN-QUU439400

PATIENT

DRUGS (2)
  1. NPLATE [Suspect]
     Indication: IDIOPATHIC THROMBOCYTOPENIC PURPURA
     Dosage: 10 A?G/KG, UNK
     Dates: start: 20100519, end: 20100729
  2. NPLATE [Suspect]
     Dates: start: 20100519, end: 20100729

REACTIONS (5)
  - CONTUSION [None]
  - DRUG INEFFECTIVE [None]
  - EPISTAXIS [None]
  - HAEMORRHAGE [None]
  - PLATELET COUNT DECREASED [None]
